FAERS Safety Report 8952577 (Version 1)
Quarter: 2012Q4

REPORT INFORMATION
  Report Type: 
  Country: CH (occurrence: CH)
  Receive Date: 20121205
  Receipt Date: 20121205
  Transmission Date: 20130627
  Serious: Yes (Hospitalization)
  Sender: FDA-Public Use
  Company Number: CH-BRISTOL-MYERS SQUIBB COMPANY-17158023

PATIENT
  Age: 55 Year
  Sex: Male

DRUGS (8)
  1. VIDEX EC [Suspect]
     Indication: HIV INFECTION
     Dosage: ongoing
     Route: 048
     Dates: start: 200408
  2. KALETRA [Suspect]
     Indication: HIV INFECTION
     Dosage: 2 Dosage forms,Ongoing
     Route: 048
     Dates: start: 200408
  3. VIREAD [Suspect]
     Indication: HIV INFECTION
     Dosage: Film coated tablets.strength 245mg
     Route: 048
     Dates: start: 200408
  4. SEROQUEL [Suspect]
     Indication: SCHIZOPHRENIA, PARANOID TYPE
     Route: 048
     Dates: start: 200801, end: 2009
  5. SOLIAN [Concomitant]
     Indication: SCHIZOPHRENIA, PARANOID TYPE
     Dosage: Tablets,Ongoing
     Route: 048
     Dates: start: 2006
  6. FERRO SANOL [Concomitant]
     Dosage: Ongoing
     Route: 048
     Dates: start: 2008
  7. NEXIUM [Concomitant]
     Dosage: Ongoing
     Route: 048
     Dates: start: 2006
  8. SUPRADYN [Concomitant]
     Dosage: Ongoing
     Route: 048
     Dates: start: 2008

REACTIONS (4)
  - Rhabdomyolysis [Recovered/Resolved]
  - Blood creatine phosphokinase increased [Recovering/Resolving]
  - Muscular weakness [Recovered/Resolved]
  - Gait disturbance [Recovering/Resolving]
